FAERS Safety Report 5745730-4 (Version None)
Quarter: 2008Q2

REPORT INFORMATION
  Report Type: 
  Country: None (occurrence: None)
  Receive Date: 20080521
  Receipt Date: 20080513
  Transmission Date: 20081010
  Serious: Yes (Other)
  Sender: FDA-Public Use
  Company Number: US-GENENTECH-261013

PATIENT
  Age: 3 Year
  Sex: Female

DRUGS (1)
  1. RITUXAN [Suspect]
     Indication: EVANS SYNDROME

REACTIONS (1)
  - ANAPHYLACTIC REACTION [None]
